FAERS Safety Report 7545541-3 (Version None)
Quarter: 2011Q2

REPORT INFORMATION
  Report Type: 
  Country: None (occurrence: None)
  Receive Date: 20110525
  Receipt Date: 20110303
  Transmission Date: 20111010
  Serious: No
  Sender: FDA-Public Use
  Company Number: 324365

PATIENT
  Age: 56 Year
  Sex: Female

DRUGS (3)
  1. PREVACID [Concomitant]
  2. VICTOZA [Suspect]
     Indication: TYPE 2 DIABETES MELLITUS
     Dosage: 1.2 MG, QD, SUBCUTANEOUS
     Route: 058
     Dates: start: 20110125
  3. METFORMIN HCL [Concomitant]

REACTIONS (5)
  - INJECTION SITE REACTION [None]
  - WEIGHT DECREASED [None]
  - NAUSEA [None]
  - DYSPNOEA [None]
  - DYSPHAGIA [None]
